FAERS Safety Report 19946434 (Version 1)
Quarter: 2021Q4

REPORT INFORMATION
  Report Type: Spontaneous
  Country: US (occurrence: US)
  Receive Date: 20211012
  Receipt Date: 20211012
  Transmission Date: 20220303
  Serious: No
  Sender: FDA-Public Use
  Company Number: 2021A753219

PATIENT
  Age: 12077 Day
  Sex: Male
  Weight: 83.9 kg

DRUGS (1)
  1. PULMICORT FLEXHALER [Suspect]
     Active Substance: BUDESONIDE
     Dosage: 180 UG 2 PUFFS TWICE A DAY
     Route: 055
     Dates: start: 20210928

REACTIONS (5)
  - COVID-19 [Unknown]
  - Device defective [Unknown]
  - Device delivery system issue [Unknown]
  - Incorrect dose administered by device [Unknown]
  - Device malfunction [Unknown]

NARRATIVE: CASE EVENT DATE: 20210928
